FAERS Safety Report 8095811 (Version 6)
Quarter: 2017Q2

REPORT INFORMATION
  Report Type: Spontaneous
  Country: GB (occurrence: GB)
  Receive Date: 20110818
  Receipt Date: 20170629
  Transmission Date: 20170830
  Serious: Yes (Death, Hospitalization, Other)
  Sender: FDA-Public Use
  Company Number: GB-PFIZER INC-2011186694

PATIENT
  Age: 18 Year
  Sex: Female

DRUGS (2)
  1. MIFEGYNE [Suspect]
     Active Substance: MIFEPRISTONE
     Indication: ABORTION INDUCED
     Dosage: 200 MG, 1X/DAY
     Route: 065
     Dates: start: 20060610, end: 20060610
  2. MISOPROSTOL. [Suspect]
     Active Substance: MISOPROSTOL
     Indication: ABORTION INDUCED
     Dosage: 800 UG, 1X/DAY
     Route: 067
     Dates: start: 20060612, end: 20060612

REACTIONS (7)
  - Product use in unapproved indication [Fatal]
  - Seizure [Not Recovered/Not Resolved]
  - Cardiac arrest [Fatal]
  - Metrorrhagia [Fatal]
  - Hypotension [Unknown]
  - Haemorrhagic anaemia [Fatal]
  - Pyrexia [Unknown]

NARRATIVE: CASE EVENT DATE: 200606
